FAERS Safety Report 8936071 (Version 1)
Quarter: 2012Q4

REPORT INFORMATION
  Report Type: 
  Country: US (occurrence: US)
  Receive Date: 20121130
  Receipt Date: 20121130
  Transmission Date: 20130627
  Serious: No
  Sender: FDA-Public Use
  Company Number: US-ABBOTT-12P-163-0986831-00

PATIENT
  Age: 56 Year
  Sex: Male
  Weight: 86.26 kg

DRUGS (5)
  1. ANDROGEL [Suspect]
     Route: 061
     Dates: start: 201205
  2. ANDROGEL [Suspect]
     Route: 061
     Dates: start: 201104, end: 201205
  3. SYNTHROID [Concomitant]
     Indication: HYPOTHYROIDISM
  4. CRESTOR [Concomitant]
     Indication: HYPERLIPIDAEMIA
  5. DHEA [Concomitant]
     Indication: DEHYDROEPIANDROSTERONE DECREASED

REACTIONS (1)
  - Blood testosterone decreased [Not Recovered/Not Resolved]
